FAERS Safety Report 13292752 (Version 8)
Quarter: 2017Q3

REPORT INFORMATION
  Report Type: Spontaneous
  Country: US (occurrence: US)
  Receive Date: 20170303
  Receipt Date: 20170906
  Transmission Date: 20171127
  Serious: Yes (Congenital Anomaly, Other)
  Sender: FDA-Public Use
  Company Number: PHEH2017US006449

PATIENT
  Sex: Female

DRUGS (3)
  1. ONDANSETRON [Suspect]
     Active Substance: ONDANSETRON
     Indication: FOETAL EXPOSURE DURING PREGNANCY
     Route: 064
  2. ONDANSETRON [Suspect]
     Active Substance: ONDANSETRON
     Indication: FOETAL EXPOSURE DURING PREGNANCY
     Dosage: MOTHER DOSE: 4 MG UNK
     Route: 064
  3. ZOFRAN ODT [Suspect]
     Active Substance: ONDANSETRON HYDROCHLORIDE
     Indication: FOETAL EXPOSURE DURING PREGNANCY
     Dosage: MOTHER^S DOSE: 8 MG, Q8H
     Route: 064

REACTIONS (21)
  - Oedema neonatal [Unknown]
  - Cardiac aneurysm [Unknown]
  - Congenital tricuspid valve atresia [Unknown]
  - Mitral valve incompetence [Unknown]
  - Dehydration [Unknown]
  - Ventricular septal defect [Unknown]
  - Left-to-right cardiac shunt [Unknown]
  - Apnoea [Unknown]
  - Ventricular hypoplasia [Unknown]
  - Foetal cardiac disorder [Unknown]
  - Aortic valve incompetence [Unknown]
  - Left ventricular enlargement [Unknown]
  - Injury [Unknown]
  - Pulmonary hypertension [Unknown]
  - Foetal exposure during pregnancy [Unknown]
  - Swelling [Unknown]
  - Gastrooesophageal reflux disease [Unknown]
  - Patent ductus arteriosus [Unknown]
  - Failure to thrive [Unknown]
  - Dysphagia [Unknown]
  - Atrial septal defect [Unknown]
